FAERS Safety Report 6006567-4 (Version None)
Quarter: 2008Q4

REPORT INFORMATION
  Report Type: 
  Country: None (occurrence: None)
  Receive Date: 20081217
  Receipt Date: 20081210
  Transmission Date: 20090506
  Serious: Yes (Death, Life-Threatening, Hospitalization)
  Sender: FDA-Public Use
  Company Number: EC-PFIZER INC-2008152237

PATIENT

DRUGS (1)
  1. CELEBREX [Suspect]
     Indication: PAIN

REACTIONS (2)
  - RENAL CANCER [None]
  - RENAL HAEMORRHAGE [None]
